FAERS Safety Report 10370217 (Version 1)
Quarter: 2014Q1

REPORT INFORMATION
  Report Type: Spontaneous
  Country: US (occurrence: None)
  Receive Date: 20140306
  Receipt Date: 20140306
  Transmission Date: 20141002
  Serious: Yes (Other)
  Sender: FDA-Public Use
  Company Number: 163-21880-13071432

PATIENT
  Age: 79 Year
  Sex: Male

DRUGS (10)
  1. REVLIMID [Suspect]
     Indication: PLASMA CELL MYELOMA
     Dosage: 25 MG, 14 IN 14 D, PO?16-MAY-2013 - PERMANENTLY DISCONTINUED
     Route: 048
     Dates: start: 20130516
  2. ACETAMINOPHEN-CODEINE (GALENIC/PARACETAMOL/CODEINE/) (UNKNOWN) [Concomitant]
  3. ASPIRIN (ACETYLSALICYLIC ACID) (UNKNOWN) (ACETYLSALICYLIC ACID) [Concomitant]
  4. ATORVASTATIN (UNKNOWN) [Concomitant]
  5. CALCIUM (UNKNOWN) [Concomitant]
  6. CLONAZEPAM (UNKNOWN) [Concomitant]
  7. CYCLOBENZAPRINE HCL (CYCLOBENZAPRINE HYDROCHLORIDE) (UNKNOWN) [Concomitant]
  8. DEXAMETHASONE (UNKNOWN) [Concomitant]
  9. GLYBURIDE (GLIBENCLAMIDE) (UNKNOWN) [Concomitant]
  10. ISOSORBIDE MONONITRATE (UNKNOWN) [Concomitant]

REACTIONS (3)
  - Renal failure [None]
  - Dehydration [None]
  - Diarrhoea [None]
